FAERS Safety Report 9492907 (Version 1)
Quarter: 2013Q3

REPORT INFORMATION
  Report Type: Spontaneous
  Country: CN (occurrence: CN)
  Receive Date: 20130902
  Receipt Date: 20130902
  Transmission Date: 20140515
  Serious: Yes (Other)
  Sender: FDA-Public Use
  Company Number: CN-ROCHE-1268780

PATIENT
  Sex: Female
  Weight: 56 kg

DRUGS (2)
  1. PEGASYS [Suspect]
     Indication: VIRAL INFECTION
     Route: 030
     Dates: start: 20120322, end: 20120408
  2. SILYMARIN [Concomitant]
     Route: 048
     Dates: start: 20120322, end: 20120408

REACTIONS (1)
  - Leukopenia [Unknown]
